FAERS Safety Report 8853652 (Version 2)
Quarter: 2012Q4

REPORT INFORMATION
  Report Type: 
  Country: CO (occurrence: CO)
  Receive Date: 20121023
  Receipt Date: 20121101
  Transmission Date: 20130627
  Serious: Yes (Life-Threatening, Other)
  Sender: FDA-Public Use
  Company Number: CO-AMGEN-COLSP2012066708

PATIENT
  Age: 52 Year
  Sex: Female

DRUGS (4)
  1. ENBREL [Suspect]
     Indication: PRODUCT USED FOR UNKNOWN INDICATION
     Dosage: 50 mg, weekly
     Route: 058
     Dates: start: 20110827, end: 20120425
  2. ISONIAZIDE [Suspect]
     Indication: LATENT TUBERCULOSIS
     Dosage: UNK
  3. HYDROCODONE W/ACETAMINOPHEN [Concomitant]
     Dosage: 500 + 10 mg every 8 hours
     Route: 048
  4. DULOXETINE [Concomitant]
     Dosage: 60 mg, every 12 hours
     Route: 048

REACTIONS (10)
  - Brain neoplasm benign [Unknown]
  - Hypoacusis [Unknown]
  - Vertigo [Unknown]
  - Headache [Unknown]
  - Hepatic enzyme increased [Unknown]
  - Acne [Unknown]
  - Fibromyalgia [Unknown]
  - Asthenia [Unknown]
  - Pain in extremity [Unknown]
  - Paraesthesia [Unknown]
